FAERS Safety Report 8428087-X (Version None)
Quarter: 2012Q2

REPORT INFORMATION
  Report Type: 
  Country: None (occurrence: None)
  Receive Date: 20120611
  Receipt Date: 20120305
  Transmission Date: 20120825
  Serious: No
  Sender: FDA-Public Use
  Company Number: US-ASTRAZENECA-2012SE15100

PATIENT
  Age: 11 Year
  Sex: Male

DRUGS (2)
  1. THREE OTHER RX'S [Concomitant]
  2. RHINOCORT [Suspect]
     Route: 045

REACTIONS (3)
  - BURNING SENSATION MUCOSAL [None]
  - DRUG DOSE OMISSION [None]
  - SINUSITIS [None]
